FAERS Safety Report 7902531-6 (Version None)
Quarter: 2011Q4

REPORT INFORMATION
  Report Type: 
  Country: None (occurrence: None)
  Receive Date: 20111108
  Receipt Date: 20111026
  Transmission Date: 20120403
  Serious: Yes (Hospitalization, Other)
  Sender: FDA-Public Use
  Company Number: US-ELI_LILLY_AND_COMPANY-US201109004864

PATIENT
  Sex: Female

DRUGS (11)
  1. VALIUM [Concomitant]
  2. DESMOPRESSIN ACETATE [Concomitant]
  3. SIMVASTATIN [Concomitant]
  4. FORTEO [Suspect]
     Indication: OSTEOPOROSIS
     Dosage: 20 UG, QD
     Route: 065
     Dates: start: 20110501
  5. CYMBALTA [Suspect]
     Indication: DEPRESSION
     Dosage: 60 MG, QD
     Dates: start: 20110101
  6. LAMICTAL [Concomitant]
  7. ACTEMRA [Concomitant]
  8. ADDERALL 5 [Concomitant]
  9. VESICARE [Concomitant]
  10. RECLAST [Concomitant]
  11. FORTEO [Suspect]
     Dosage: 20 UG, QD
     Route: 065
     Dates: start: 20110501

REACTIONS (4)
  - INTENTIONAL DRUG MISUSE [None]
  - NAUSEA [None]
  - LIMB SALVAGE THERAPY [None]
  - VOMITING [None]
